FAERS Safety Report 8513115-3 (Version None)
Quarter: 2012Q3

REPORT INFORMATION
  Report Type: 
  Country: None (occurrence: None)
  Receive Date: 20120703
  Receipt Date: 20120628
  Transmission Date: 20120928
  Serious: Yes (Other)
  Sender: FDA-Public Use
  Company Number: PHHY2012BR056284

PATIENT
  Sex: Male
  Weight: 114 kg

DRUGS (7)
  1. CLOZAPINE [Suspect]
     Dosage: 1 TABLET (25MG) DAILY
  2. MEMANTINE HYDROCHLORIDE [Concomitant]
     Indication: FRONTOTEMPORAL DEMENTIA
     Dosage: 2 DF DAILY
  3. DIOVAN [Suspect]
     Indication: HYPERTENSION
     Dosage: 1 TABLET AT MORNING
  4. CLOZAPINE [Suspect]
     Indication: FRONTOTEMPORAL DEMENTIA
     Dosage: 50 MG DAILY
  5. CLOZAPINE [Suspect]
     Dosage: 100MG DAILY
     Dates: start: 20120628
  6. IBUPROFEN [Concomitant]
     Indication: DEPRESSION
     Dosage: 150 MG, UNK
     Dates: start: 20060101
  7. CITALOPRAM HYDROBROMIDE [Concomitant]
     Indication: DEPRESSION
     Dosage: 30 MG, UNK
     Dates: start: 20060101

REACTIONS (6)
  - PANIC REACTION [None]
  - FEAR [None]
  - BLOOD GLUCOSE ABNORMAL [None]
  - HYPERSOMNIA [None]
  - WEIGHT INCREASED [None]
  - PERSECUTORY DELUSION [None]
